FAERS Safety Report 7264811-X (Version None)
Quarter: 2011Q1

REPORT INFORMATION
  Report Type: 
  Country: None (occurrence: None)
  Receive Date: 20110131
  Receipt Date: 20110118
  Transmission Date: 20110831
  Serious: Yes (Hospitalization)
  Sender: FDA-Public Use
  Company Number: CA-JNJFOC-20110105217

PATIENT
  Sex: Male

DRUGS (2)
  1. HYDROCORTISONE [Concomitant]
     Dosage: Q 6
     Route: 042
  2. REMICADE [Suspect]
     Indication: CROHN'S DISEASE
     Route: 042

REACTIONS (3)
  - PYREXIA [None]
  - MUSCLE SPASMS [None]
  - NAUSEA [None]
